FAERS Safety Report 7743893-2 (Version None)
Quarter: 2011Q3

REPORT INFORMATION
  Report Type: 
  Country: None (occurrence: None)
  Receive Date: 20110912
  Receipt Date: 20110831
  Transmission Date: 20111222
  Serious: Yes (Hospitalization)
  Sender: FDA-Public Use
  Company Number: US-GLAXOSMITHKLINE-A0943772A

PATIENT
  Age: 65 Year
  Sex: Male
  Weight: 63.7 kg

DRUGS (1)
  1. MELPHALAN HYDROCHLORIDE [Suspect]
     Indication: MULTIPLE MYELOMA
     Dosage: 64MG PER DAY
     Route: 048
     Dates: start: 20110303, end: 20110306

REACTIONS (1)
  - FEBRILE NEUTROPENIA [None]
